FAERS Safety Report 10270603 (Version 1)
Quarter: 2014Q3

REPORT INFORMATION
  Report Type: Spontaneous
  Country: JP (occurrence: JP)
  Receive Date: 20140701
  Receipt Date: 20140701
  Transmission Date: 20150326
  Serious: Yes (Hospitalization, Other)
  Sender: FDA-Public Use
  Company Number: JP-009507513-1406JPN013951

PATIENT
  Age: 49 Year
  Sex: Male
  Weight: 85 kg

DRUGS (6)
  1. REBETOL [Suspect]
     Active Substance: RIBAVIRIN
     Indication: CHRONIC HEPATITIS C
     Dosage: 1000 MG A DAY
     Route: 048
     Dates: start: 20140107, end: 20140125
  2. SIMEPREVIR [Suspect]
     Active Substance: SIMEPREVIR
     Indication: CHRONIC HEPATITIS C
     Dosage: 100 MG, DAILY
     Route: 048
     Dates: start: 20140107, end: 20140125
  3. SIMEPREVIR [Suspect]
     Active Substance: SIMEPREVIR
     Dosage: UNK
     Dates: start: 201401
  4. REBETOL [Suspect]
     Active Substance: RIBAVIRIN
     Dosage: 1000 MG A DAY
     Route: 048
     Dates: start: 201402
  5. PEGINTRON [Suspect]
     Active Substance: PEGINTERFERON ALFA-2B
     Dosage: 120 MICROGRAM WEEKLY
     Route: 058
     Dates: start: 201402
  6. PEGINTRON [Suspect]
     Active Substance: PEGINTERFERON ALFA-2B
     Indication: CHRONIC HEPATITIS C
     Dosage: 120 MICROGRAM WEEKLY
     Route: 058
     Dates: start: 20140107, end: 20140114

REACTIONS (3)
  - Haemoglobin decreased [Unknown]
  - Pancreatitis acute [Recovering/Resolving]
  - Pyrexia [Recovered/Resolved]

NARRATIVE: CASE EVENT DATE: 201401
